FAERS Safety Report 7319434-0 (Version None)
Quarter: 2011Q1

REPORT INFORMATION
  Report Type: 
  Country: None (occurrence: None)
  Receive Date: 20110228
  Receipt Date: 20100318
  Transmission Date: 20110831
  Serious: No
  Sender: FDA-Public Use
  Company Number: A0851678A

PATIENT
  Sex: Female

DRUGS (6)
  1. AMBIEN [Concomitant]
  2. LAMICTAL [Suspect]
     Dosage: 150U PER DAY
     Route: 048
  3. VERAPAMIL [Concomitant]
  4. TRAZODONE [Concomitant]
  5. HYDROCODONE BITARTRATE [Concomitant]
  6. EFFEXOR [Concomitant]

REACTIONS (1)
  - ALOPECIA [None]
